FAERS Safety Report 9985982 (Version 1)
Quarter: 2014Q1

REPORT INFORMATION
  Report Type: Spontaneous
  Country: JP (occurrence: JP)
  Receive Date: 20140307
  Receipt Date: 20140307
  Transmission Date: 20141002
  Serious: No
  Sender: FDA-Public Use
  Company Number: JP-SUCAMPO PHARMA AMERICAS, INC-SPI201400162

PATIENT
  Sex: Male

DRUGS (3)
  1. AMITIZA [Suspect]
     Dosage: 24 MCG, BID
     Route: 048
  2. AMITIZA [Suspect]
     Dosage: 24 MCG, QD
     Route: 048
  3. TICLOPIDINE [Concomitant]

REACTIONS (4)
  - Eczema [Unknown]
  - Chills [Unknown]
  - Dyspnoea [Unknown]
  - Nausea [Unknown]
